FAERS Safety Report 20973291 (Version 1)
Quarter: 2022Q2

REPORT INFORMATION
  Report Type: Spontaneous
  Country: DE (occurrence: DE)
  Receive Date: 20220617
  Receipt Date: 20220617
  Transmission Date: 20220721
  Serious: Yes (Other)
  Sender: FDA-Public Use
  Company Number: DE-WOCKHARDT BIO AG-2022WBA000071

PATIENT
  Age: 66 Year
  Sex: Female

DRUGS (3)
  1. CYCLOSPORINE [Suspect]
     Active Substance: CYCLOSPORINE
     Indication: Proteinuria
     Route: 065
  2. PREDNISOLONE [Concomitant]
     Active Substance: PREDNISOLONE
     Indication: Product used for unknown indication
     Dosage: UNK
     Route: 065
  3. Calcidiol [Concomitant]
     Indication: Hypovitaminosis
     Dosage: UNK
     Route: 065

REACTIONS (4)
  - Hyperplasia [Recovered/Resolved]
  - Gingival hypertrophy [Recovered/Resolved]
  - Hirsutism [Recovered/Resolved]
  - Product use in unapproved indication [Unknown]
